FAERS Safety Report 16803782 (Version 1)
Quarter: 2019Q3

REPORT INFORMATION
  Report Type: Spontaneous
  Country: US (occurrence: US)
  Receive Date: 20190913
  Receipt Date: 20190913
  Transmission Date: 20191005
  Serious: No
  Sender: FDA-Public Use
  Company Number: US-JNJFOC-20190908514

PATIENT
  Age: 37 Year
  Sex: Male
  Weight: 77.18 kg

DRUGS (2)
  1. OMEPRAZOLE. [Concomitant]
     Active Substance: OMEPRAZOLE
     Indication: OESOPHAGEAL DISORDER
  2. MENS ROGAINE EXTRA STRENGTH [Suspect]
     Active Substance: MINOXIDIL
     Indication: ALOPECIA
     Dosage: AT FIRST MORE THAN DIRECTED, BUT HAVE CUT BACK TO THE NORMAL AMOUNT NOW.
     Route: 061
     Dates: start: 20190809

REACTIONS (4)
  - Alopecia [Not Recovered/Not Resolved]
  - Overdose [Not Recovered/Not Resolved]
  - Feeling jittery [Recovering/Resolving]
  - Paraesthesia [Recovering/Resolving]

NARRATIVE: CASE EVENT DATE: 20190809
